FAERS Safety Report 16365343 (Version 1)
Quarter: 2019Q2

REPORT INFORMATION
  Report Type: Spontaneous
  Country: US (occurrence: US)
  Receive Date: 20190529
  Receipt Date: 20190529
  Transmission Date: 20190711
  Serious: Yes (Death, Life-Threatening, Other)
  Sender: FDA-Public Use
  Company Number: US-JNJFOC-20190529686

PATIENT

DRUGS (1)
  1. DIPHENHYDRAMINE. [Suspect]
     Active Substance: DIPHENHYDRAMINE
     Indication: PRODUCT USED FOR UNKNOWN INDICATION
     Route: 065

REACTIONS (16)
  - Coma [Unknown]
  - Depressed level of consciousness [Unknown]
  - Tremor [Unknown]
  - Hyperreflexia [Unknown]
  - Myoclonus [Unknown]
  - Clonus [Unknown]
  - Overdose [Fatal]
  - Ventricular arrhythmia [Unknown]
  - Agitation [Unknown]
  - Electrocardiogram QT prolonged [Unknown]
  - Tachycardia [Unknown]
  - Delirium [Unknown]
  - Hallucination [Unknown]
  - Electrocardiogram QRS complex prolonged [Unknown]
  - Substance-induced psychotic disorder [Unknown]
  - Seizure [Unknown]
